FAERS Safety Report 14000953 (Version 1)
Quarter: 2017Q3

REPORT INFORMATION
  Report Type: Spontaneous
  Country: GB (occurrence: GB)
  Receive Date: 20170922
  Receipt Date: 20170922
  Transmission Date: 20171128
  Serious: Yes (Other)
  Sender: FDA-Public Use
  Company Number: GB-ELI_LILLY_AND_COMPANY-GB201709006152

PATIENT
  Age: 52 Year
  Sex: Male
  Weight: 107 kg

DRUGS (9)
  1. HUMULIN N [Suspect]
     Active Substance: INSULIN HUMAN
     Indication: PRODUCT USED FOR UNKNOWN INDICATION
     Dosage: UNK, UNKNOWN
     Route: 065
     Dates: start: 20170907
  2. AMITRIPTYLINE HYDROCHLORIDE. [Concomitant]
     Active Substance: AMITRIPTYLINE HYDROCHLORIDE
     Dosage: 1 DF, DAILY
     Route: 065
     Dates: start: 20170728
  3. LEFLUNOMIDE. [Concomitant]
     Active Substance: LEFLUNOMIDE
     Dosage: 1 DF, DAILY
     Route: 065
     Dates: start: 20170728
  4. NAPROXEN. [Concomitant]
     Active Substance: NAPROXEN
     Dosage: 1 DF, BID
     Route: 065
     Dates: start: 20170728
  5. GABAPENTIN. [Concomitant]
     Active Substance: GABAPENTIN
     Dosage: 1 DF, TID
     Route: 065
     Dates: start: 20170728
  6. PERINDOPRIL ERBUMINE. [Concomitant]
     Active Substance: PERINDOPRIL ERBUMINE
     Dosage: 1 DF, DAILY
     Route: 065
     Dates: start: 20170728
  7. GOLIMUMAB [Concomitant]
     Active Substance: GOLIMUMAB
     Dosage: UNK UNK, UNKNOWN
     Route: 065
     Dates: start: 20170728
  8. SERTRALINE [Concomitant]
     Active Substance: SERTRALINE HYDROCHLORIDE
     Dosage: UNK UNK, UNKNOWN
     Route: 065
     Dates: start: 20170728
  9. TRAMADOL. [Concomitant]
     Active Substance: TRAMADOL
     Dosage: 1 DF, EVERY 6 HRS
     Route: 065
     Dates: start: 20170728

REACTIONS (1)
  - Nausea [Not Recovered/Not Resolved]

NARRATIVE: CASE EVENT DATE: 20170907
